FAERS Safety Report 10380816 (Version 9)
Quarter: 2014Q4

REPORT INFORMATION
  Report Type: Report from Study
  Country: CA (occurrence: CA)
  Receive Date: 20140813
  Receipt Date: 20141121
  Transmission Date: 20150528
  Serious: Yes (Other)
  Sender: FDA-Public Use
  Company Number: CA-ROCHE-1448797

PATIENT
  Age: 62 Year
  Sex: Female
  Weight: 45.4 kg

DRUGS (6)
  1. AVASTIN [Suspect]
     Active Substance: BEVACIZUMAB
     Indication: GLIOBLASTOMA
     Route: 042
     Dates: start: 20140730
  2. AVASTIN [Suspect]
     Active Substance: BEVACIZUMAB
     Route: 042
     Dates: start: 20140917
  3. SELENIUM [Concomitant]
     Active Substance: SELENIUM
  4. VITAMIN A [Concomitant]
     Active Substance: VITAMIN A
  5. COD LIVER OIL [Concomitant]
     Active Substance: COD LIVER OIL
  6. DECADRON [Concomitant]
     Active Substance: DEXAMETHASONE

REACTIONS (9)
  - Peripheral swelling [Not Recovered/Not Resolved]
  - Visual field defect [Not Recovered/Not Resolved]
  - Fall [Unknown]
  - Pain in extremity [Not Recovered/Not Resolved]
  - Cough [Not Recovered/Not Resolved]
  - Dizziness [Unknown]
  - Contusion [Recovering/Resolving]
  - Visual acuity reduced [Not Recovered/Not Resolved]
  - Nasal congestion [Not Recovered/Not Resolved]

NARRATIVE: CASE EVENT DATE: 201408
